FAERS Safety Report 17888428 (Version 1)
Quarter: 2020Q2

REPORT INFORMATION
  Report Type: Spontaneous
  Country: GB (occurrence: GB)
  Receive Date: 20200612
  Receipt Date: 20200612
  Transmission Date: 20200714
  Serious: Yes (Death, Hospitalization, Other)
  Sender: FDA-Public Use
  Company Number: GB-AMGEN-GBRSP2020090947

PATIENT
  Age: 88 Year
  Sex: Female
  Weight: 40 kg

DRUGS (8)
  1. CALCIUM CARBONATE. [Concomitant]
     Active Substance: CALCIUM CARBONATE
     Dosage: UNK
  2. FUROSEMIDE SODIUM [Concomitant]
     Active Substance: FUROSEMIDE SODIUM
     Dosage: UNK
  3. CASSIA SENNA [Concomitant]
     Active Substance: HERBALS\SENNOSIDES
     Dosage: UNK
  4. PARACETAMOL [Concomitant]
     Active Substance: ACETAMINOPHEN
     Dosage: UNK
  5. PROLIA [Suspect]
     Active Substance: DENOSUMAB
     Indication: OSTEOPOROSIS
     Dosage: 60 MILLIGRAM
     Route: 042
     Dates: start: 20200319, end: 20200325
  6. CODEINE [Concomitant]
     Active Substance: CODEINE
     Dosage: UNK
  7. ADCAL [CALCIUM CARBONATE] [Concomitant]
     Dosage: UNK
  8. SODIUM HYDROGEN CARBONATE [Concomitant]
     Active Substance: SODIUM BICARBONATE
     Dosage: UNK

REACTIONS (11)
  - Death [Fatal]
  - Hypocalcaemia [Fatal]
  - Lethargy [Fatal]
  - Confusional state [Fatal]
  - Hypersensitivity [Fatal]
  - Haematuria [Fatal]
  - Decreased appetite [Fatal]
  - Mobility decreased [Fatal]
  - Urinary incontinence [Fatal]
  - Pollakiuria [Fatal]
  - Anal incontinence [Fatal]

NARRATIVE: CASE EVENT DATE: 20200319
